FAERS Safety Report 6073308-4 (Version None)
Quarter: 2009Q1

REPORT INFORMATION
  Report Type: 
  Country: None (occurrence: None)
  Receive Date: 20090211
  Receipt Date: 20090128
  Transmission Date: 20090719
  Serious: Yes (Other)
  Sender: FDA-Public Use
  Company Number: PHBS2009US00750

PATIENT
  Age: 53 Year
  Sex: Female

DRUGS (10)
  1. METOPROLOL [Suspect]
     Indication: HYPERTENSION
  2. ACETAMINOPHEN AND OXYCODONE HCL [Concomitant]
  3. LANSOPRAZOLE [Concomitant]
  4. ASPIRIN [Concomitant]
  5. ATORVASTATIN [Concomitant]
  6. CLOPIDOGREL [Concomitant]
  7. VENLAFAXINE HCL [Concomitant]
  8. ALBUTEROL [Concomitant]
  9. GABAPENTIN [Concomitant]
  10. INSULIN [Concomitant]

REACTIONS (5)
  - BLISTER [None]
  - DERMATITIS BULLOUS [None]
  - PAIN IN EXTREMITY [None]
  - PRURITUS [None]
  - PYREXIA [None]
